FAERS Safety Report 11417795 (Version 1)
Quarter: 2015Q3

REPORT INFORMATION
  Report Type: Spontaneous
  Country: US (occurrence: US)
  Receive Date: 20150825
  Receipt Date: 20150825
  Transmission Date: 20151125
  Serious: Yes (Other)
  Sender: FDA-Public Use
  Company Number: US-TEVA-588022USA

PATIENT
  Age: 51 Year

DRUGS (2)
  1. NUVIGIL [Suspect]
     Active Substance: ARMODAFINIL
     Indication: SLEEP APNOEA SYNDROME
     Route: 065
     Dates: start: 20150519
  2. NUVIGIL [Suspect]
     Active Substance: ARMODAFINIL
     Route: 065
     Dates: start: 20150616

REACTIONS (3)
  - Cheilitis [Unknown]
  - Oral mucosal exfoliation [Unknown]
  - Swollen tongue [Unknown]

NARRATIVE: CASE EVENT DATE: 20150702
